FAERS Safety Report 23119441 (Version 1)
Quarter: 2023Q4

REPORT INFORMATION
  Report Type: Spontaneous
  Country: US (occurrence: US)
  Receive Date: 20231028
  Receipt Date: 20231028
  Transmission Date: 20240110
  Serious: No
  Sender: FDA-Public Use
  Company Number: US-PURDUE-USA-2023-0302736

PATIENT
  Age: 68 Year
  Sex: Male
  Weight: 98.485 kg

DRUGS (5)
  1. DRONABINOL [Suspect]
     Active Substance: DRONABINOL
     Indication: Decreased appetite
     Dosage: UNKNOWN
     Route: 048
  2. DRONABINOL [Suspect]
     Active Substance: DRONABINOL
     Indication: Weight decreased
  3. KEYTRUDA [Concomitant]
     Active Substance: PEMBROLIZUMAB
     Indication: Product used for unknown indication
     Dosage: DOUBLE DOSE EVERY 6 WEEKS
     Route: 065
  4. KEYTRUDA [Concomitant]
     Active Substance: PEMBROLIZUMAB
     Dosage: A SINGLE DOSE EVERY 3 WEEKS
     Route: 065
  5. LENVIMA [Concomitant]
     Active Substance: LENVATINIB
     Indication: Renal cancer
     Dosage: 14 MILLIGRAM
     Route: 048
     Dates: start: 20220415

REACTIONS (1)
  - Dizziness [Unknown]
